FAERS Safety Report 6125077-7 (Version None)
Quarter: 2009Q1

REPORT INFORMATION
  Report Type: 
  Country: None (occurrence: None)
  Receive Date: 20090318
  Receipt Date: 20090306
  Transmission Date: 20090719
  Serious: Yes (Other)
  Sender: FDA-Public Use
  Company Number: 231772K09USA

PATIENT
  Age: 68 Year
  Sex: Female
  Weight: 62 kg

DRUGS (7)
  1. REBIF [Suspect]
     Indication: MULTIPLE SCLEROSIS
     Dosage: 44 MCG, 3 IN 1 WEEKS, SUBCUTANEOUS
     Route: 058
     Dates: start: 20030217
  2. LEVOTHYROXINE (LEVOTHYROXINE/00068001/) [Concomitant]
  3. CYTOMEL [Concomitant]
  4. DITROPAN XL (OXYBUTYNIN/00538901) [Concomitant]
  5. BENAZEPRIL HYDROCHLORIDE [Concomitant]
  6. ACTIFOLATE (ALL OTHER THERAPEUTIC PRODUCTS) [Concomitant]
  7. VITAMIN D [Concomitant]

REACTIONS (1)
  - IDIOPATHIC THROMBOCYTOPENIC PURPURA [None]
